FAERS Safety Report 6523404-X (Version None)
Quarter: 2009Q4

REPORT INFORMATION
  Report Type: 
  Country: None (occurrence: None)
  Receive Date: 20091231
  Receipt Date: 20091130
  Transmission Date: 20100525
  Serious: No
  Sender: FDA-Public Use
  Company Number: US-BAYER-200917334BCC

PATIENT
  Sex: Female

DRUGS (2)
  1. ALEVE (CAPLET) [Suspect]
     Indication: BACK PAIN
     Route: 048
     Dates: start: 20091026
  2. SUPEUDOL (OXYCODONE) [Concomitant]
     Indication: PAIN
     Dosage: TOOK A QUARTER OF A PILL
     Route: 048

REACTIONS (1)
  - BACK PAIN [None]
